FAERS Safety Report 14105312 (Version 1)
Quarter: 2017Q4

REPORT INFORMATION
  Report Type: Spontaneous
  Country: US (occurrence: US)
  Receive Date: 20171018
  Receipt Date: 20171018
  Transmission Date: 20180321
  Serious: Yes (Hospitalization)
  Sender: FDA-Public Use
  Company Number: US-BAUSCH-BL-2017-029408

PATIENT
  Age: 16 Year
  Sex: Male

DRUGS (1)
  1. SYPRINE [Suspect]
     Active Substance: TRIENTINE HYDROCHLORIDE
     Indication: PRODUCT USED FOR UNKNOWN INDICATION
     Route: 048
     Dates: start: 20171008

REACTIONS (2)
  - Product storage error [Unknown]
  - Hospitalisation [Unknown]

NARRATIVE: CASE EVENT DATE: 201710
